FAERS Safety Report 8922685 (Version 5)
Quarter: 2013Q3

REPORT INFORMATION
  Report Type: Report from Study
  Country: US (occurrence: US)
  Receive Date: 20121123
  Receipt Date: 20130906
  Transmission Date: 20140515
  Serious: Yes (Hospitalization, Other)
  Sender: FDA-Public Use
  Company Number: US-BRISTOL-MYERS SQUIBB COMPANY-17032277

PATIENT
  Age: 9 Year
  Sex: Female

DRUGS (34)
  1. DASATINIB [Suspect]
     Indication: ACUTE LYMPHOCYTIC LEUKAEMIA
     Dosage: INT 19OCT,REST 26OCT-45MG,INT 12NOV12?RESTART 20NOV12-CON-45-MG, 19DEC12 45
     Route: 048
     Dates: start: 20120817
  2. ETOPOSIDE [Suspect]
     Indication: ACUTE LYMPHOCYTIC LEUKAEMIA
     Route: 042
     Dates: start: 20121221, end: 20121223
  3. CYCLOPHOSPHAMIDE [Suspect]
     Indication: ACUTE LYMPHOCYTIC LEUKAEMIA
     Dosage: 08-08OCT,02NOV-07NOV12
     Dates: start: 20121008, end: 20121107
  4. 6-MP [Suspect]
     Indication: ACUTE LYMPHOCYTIC LEUKAEMIA
     Dosage: 11SEP-08OCT,02NOV-07NOV12
     Dates: start: 20120911, end: 20121008
  5. HYDROCORTISONE [Suspect]
     Indication: ACUTE LYMPHOCYTIC LEUKAEMIA
     Dosage: INTERRUPTED ON 02NOV2012?IT: 12MG FROM 24-DEC-12
     Route: 037
     Dates: start: 20121102
  6. METHOTREXATE [Suspect]
     Indication: ACUTE LYMPHOCYTIC LEUKAEMIA
     Dosage: INTERRUPTED ON 02NOV2012?IV :4.65MG?IT: 12MG FROM 24DEC12
     Route: 037
     Dates: start: 20121102
  7. CYTARABINE [Suspect]
     Indication: ACUTE LYMPHOCYTIC LEUKAEMIA
     Dosage: INTER ON 02NOV2012?IV:1860MG ON06NOV2012?HDIV:1820MG BID 19DEC12-20DEC12?ARA-C IT30MG ON 24DEC12
     Route: 037
     Dates: start: 20121102
  8. VINCRISTINE [Suspect]
     Indication: ACUTE LYMPHOCYTIC LEUKAEMIA
     Dosage: 3-3NOV12,07-07NOV12
     Route: 042
     Dates: start: 20121103
  9. L-ASPARAGINASE [Suspect]
     Indication: ACUTE LYMPHOCYTIC LEUKAEMIA
     Dosage: INTERR 7NOV12
     Route: 042
     Dates: start: 20121107
  10. ELSPAR [Suspect]
     Indication: ACUTE LYMPHOCYTIC LEUKAEMIA
     Dosage: 22,750UNITS
     Route: 042
     Dates: start: 20121202, end: 20121202
  11. PEGASPARGASE [Suspect]
     Indication: ACUTE LYMPHOCYTIC LEUKAEMIA
     Dosage: 1 DF: 255 UNITS
     Route: 042
     Dates: start: 20121224
  12. DEXAMETHASONE [Suspect]
     Indication: ACUTE LYMPHOCYTIC LEUKAEMIA
     Route: 048
     Dates: start: 20121219, end: 20121223
  13. ACETAMINOPHEN [Concomitant]
     Dosage: 10-10OCT,16-22OCT12
     Dates: start: 20121010, end: 20121022
  14. ALLOPURINOL [Concomitant]
     Dates: start: 20120805, end: 20120808
  15. BENADRYL [Concomitant]
     Dosage: 31AUG2012-ONG
     Dates: start: 20120831
  16. DEXTROSE [Concomitant]
     Dosage: 10-19OCT12, 29-29OCT12
     Dates: start: 20121010, end: 20121029
  17. DIPHENHYDRAMINE [Concomitant]
     Dosage: 27NOV12,28NOV12,01DEC12,02DEC12,03DEC12
     Dates: start: 20121012, end: 20121029
  18. IMMUNE GLOBULIN [Concomitant]
     Dates: start: 20121022, end: 20121022
  19. LIDOCAINE [Concomitant]
     Dates: start: 20121009, end: 20121009
  20. METRONIDAZOLE [Concomitant]
     Dosage: 18-27OCT2012 (IV), 27OCT2012-08NOV2012 (ORAL)
     Dates: start: 20121018, end: 20121108
  21. MUPIROCIN [Concomitant]
     Dates: start: 20120807, end: 20120810
  22. ONDANSETRON [Concomitant]
     Dosage: 10-10OCT12, 13-19OCT12, 27-29OCT12
     Dates: start: 20121010, end: 20121029
  23. OXYCODONE [Concomitant]
     Dates: start: 20120801, end: 20120807
  24. PEPCID [Concomitant]
     Dosage: 03AUG2012-ONG
     Dates: start: 20120803
  25. POTASSIUM CHLORIDE [Concomitant]
     Dates: start: 20121021, end: 20121021
  26. SEPTRA [Concomitant]
     Dosage: 10AUG2012-ONG
     Dates: start: 20120810
  27. CEFEPIME HCL [Concomitant]
     Dosage: 02-05AUG12, 09-29OCT12
     Dates: start: 20120802, end: 20121029
  28. DOCUSATE SODIUM\SENNOSIDES [Concomitant]
     Dosage: 06AUG2012-ONG
     Dates: start: 20120806
  29. MIRALAX [Concomitant]
     Dates: start: 20120805, end: 20120805
  30. OMNIPAQUE [Concomitant]
     Dates: start: 20121019, end: 20121019
  31. SODIUM CHLORIDE [Concomitant]
     Dosage: 03-10AUG12, 09-09OCT12, 19-19OCT12, 24-26OCT12, 12OCT12-ONG (NASAL SPRAY)?2,3DEC12 0.9% INJ
     Dates: start: 20120803
  32. TPN [Concomitant]
     Dates: start: 20121020, end: 20121030
  33. VANCOMYCIN [Concomitant]
     Dates: start: 20121017, end: 20121027
  34. ZOFRAN [Concomitant]
     Dosage: 03AUG12-ONG
     Dates: start: 20120803

REACTIONS (15)
  - Febrile neutropenia [Recovered/Resolved]
  - Leukopenia [Recovered/Resolved]
  - Enterocolitis infectious [Recovered/Resolved]
  - Colitis [Recovered/Resolved]
  - Diarrhoea [Recovered/Resolved]
  - Dehydration [Recovered/Resolved]
  - Vomiting [Recovered/Resolved]
  - Nausea [Recovered/Resolved]
  - Anaemia [Recovered/Resolved]
  - Hyponatraemia [Recovered/Resolved]
  - Thrombocytopenia [Recovered/Resolved]
  - Sepsis [Recovered/Resolved]
  - Mucosal inflammation [Recovered/Resolved]
  - Neutropenia [Recovered/Resolved]
  - Anaphylactic reaction [Unknown]
